FAERS Safety Report 5471636-4 (Version None)
Quarter: 2007Q3

REPORT INFORMATION
  Report Type: 
  Country: None (occurrence: None)
  Receive Date: 20070928
  Receipt Date: 20070222
  Transmission Date: 20080115
  Serious: No
  Sender: FDA-Public Use
  Company Number: US-BRISTOL-MYERS SQUIBB COMPANY-13688833

PATIENT
  Age: 51 Year
  Sex: Female

DRUGS (6)
  1. DEFINITY [Suspect]
     Indication: ECHOCARDIOGRAM
  2. METOPROLOL SUCCINATE [Concomitant]
  3. HEPARIN [Concomitant]
  4. ZANTAC [Concomitant]
  5. LIPITOR [Concomitant]
  6. ASPIRIN [Concomitant]

REACTIONS (2)
  - BURNING SENSATION [None]
  - HYPOAESTHESIA [None]
